FAERS Safety Report 21446129 (Version 1)
Quarter: 2022Q4

REPORT INFORMATION
  Report Type: Spontaneous
  Country: TR (occurrence: TR)
  Receive Date: 20221012
  Receipt Date: 20221012
  Transmission Date: 20230113
  Serious: Yes (Other)
  Sender: FDA-Public Use
  Company Number: ALC2022TR004605

PATIENT
  Sex: Female

DRUGS (1)
  1. DEXTRAN 70\HYPROMELLOSE 2910 (4000 MPA.S) [Suspect]
     Active Substance: DEXTRAN 70\HYPROMELLOSE 2910 (4000 MPA.S)
     Indication: Product used for unknown indication
     Dosage: UNK
     Route: 047

REACTIONS (3)
  - Product package associated injury [Unknown]
  - Eye injury [Unknown]
  - Product container issue [Unknown]

NARRATIVE: CASE EVENT DATE: 20220929
